FAERS Safety Report 4646819-3 (Version None)
Quarter: 2005Q2

REPORT INFORMATION
  Report Type: 
  Country: None (occurrence: None)
  Receive Date: 20050331
  Receipt Date: 20041222
  Transmission Date: 20051028
  Serious: No
  Sender: FDA-Public Use
  Company Number: 04P-163-0280669-00

PATIENT
  Sex: Female
  Weight: 83.9154 kg

DRUGS (9)
  1. HUMIRA [Suspect]
     Indication: RHEUMATOID ARTHRITIS
     Dosage: 40 MG, 1 IN 2 WK, SUBCUTANEOUS
     Route: 058
     Dates: start: 20041013, end: 20041219
  2. SERTRALINE HYDROCHLORIDE [Concomitant]
  3. METHOTREXATE [Concomitant]
  4. FOLIC ACID [Concomitant]
  5. CALCIUM FOLINATE [Concomitant]
  6. LANSOPRAZOLE [Concomitant]
  7. ZELNORMIN [Concomitant]
  8. DOXEPIN HCL [Concomitant]
  9. MULTI-VITAMINS [Concomitant]

REACTIONS (6)
  - EAR INFECTION [None]
  - EAR PRURITUS [None]
  - HEADACHE [None]
  - NAUSEA [None]
  - OTORRHOEA [None]
  - UNEVALUABLE EVENT [None]
